FAERS Safety Report 8378693-6 (Version None)
Quarter: 2012Q2

REPORT INFORMATION
  Report Type: 
  Country: None (occurrence: None)
  Receive Date: 20120522
  Receipt Date: 20120514
  Transmission Date: 20120825
  Serious: Yes (Other)
  Sender: FDA-Public Use
  Company Number: JP-MERCK-1205USA03386

PATIENT
  Age: 88 Year
  Sex: Male

DRUGS (5)
  1. PEPCID [Suspect]
     Route: 048
     Dates: start: 20120401
  2. RIKKUNSHI-TO [Concomitant]
     Route: 065
  3. PEPCID [Suspect]
     Indication: GASTROOESOPHAGEAL REFLUX DISEASE
     Route: 048
     Dates: start: 20120201
  4. MARZULENE [Concomitant]
     Route: 065
  5. DEPAS [Concomitant]
     Route: 065

REACTIONS (4)
  - URTICARIA [None]
  - RHABDOMYOLYSIS [None]
  - OCULOMUCOCUTANEOUS SYNDROME [None]
  - MYALGIA [None]
